FAERS Safety Report 22288916 (Version 2)
Quarter: 2023Q2

REPORT INFORMATION
  Report Type: Spontaneous
  Country: BR (occurrence: BR)
  Receive Date: 20230505
  Receipt Date: 20230517
  Transmission Date: 20230721
  Serious: Yes (Death, Hospitalization)
  Sender: FDA-Public Use
  Company Number: BR-PFIZER INC-PV202300079322

PATIENT
  Sex: Male
  Weight: 75 kg

DRUGS (6)
  1. VYNDAQEL [Suspect]
     Active Substance: TAFAMIDIS MEGLUMINE
     Indication: Cardiac amyloidosis
     Dosage: 20 MG, DAILY
     Route: 048
     Dates: start: 2018
  2. VYNDAQEL [Suspect]
     Active Substance: TAFAMIDIS MEGLUMINE
     Indication: Hereditary neuropathic amyloidosis
  3. FUROSEMIDE [Concomitant]
     Active Substance: FUROSEMIDE
     Indication: Cardiac failure
     Dosage: VARIED DOSES
     Dates: start: 2015
  4. VALSARTAN [Concomitant]
     Active Substance: VALSARTAN
     Indication: Cardiac failure
     Dosage: 50 MG, 2X/DAY
     Dates: start: 2019
  5. DAPAGLIFLOZIN [Concomitant]
     Active Substance: DAPAGLIFLOZIN
     Indication: Cardiac failure
     Dosage: 10 MG, DAILY
     Dates: start: 2020
  6. SPIRONOLACTONE [Concomitant]
     Active Substance: SPIRONOLACTONE
     Indication: Cardiac failure
     Dosage: 25 MG
     Dates: start: 2015

REACTIONS (4)
  - Cardiac failure [Fatal]
  - Intentional product use issue [Unknown]
  - Cardiac amyloidosis [Unknown]
  - Condition aggravated [Unknown]

NARRATIVE: CASE EVENT DATE: 20230101
